FAERS Safety Report 4524892-0 (Version None)
Quarter: 2004Q4

REPORT INFORMATION
  Report Type: 
  Country: None (occurrence: None)
  Receive Date: 20041117
  Receipt Date: 20040412
  Transmission Date: 20050328
  Serious: Yes (Other)
  Sender: FDA-Public Use
  Company Number: 2004S1001057

PATIENT
  Age: 51 Year
  Sex: Male

DRUGS (3)
  1. CLOZAPINE [Suspect]
     Indication: SCHIZOPHRENIA, PARANOID TYPE
     Dosage: 50 MG Q AM, ORAL
     Route: 048
     Dates: start: 19990101, end: 20040408
  2. CLOZAPINE [Suspect]
     Indication: SCHIZOPHRENIA, PARANOID TYPE
     Dosage: 50 MG Q AM, ORAL
     Route: 048
     Dates: start: 20040409
  3. CLOZAPINE [Suspect]
     Indication: SCHIZOPHRENIA, PARANOID TYPE
     Dosage: 100MG Q AM, 300MG Q, HS, ORAL
     Route: 048
     Dates: start: 19990101, end: 20040409

REACTIONS (1)
  - NEUTROPENIA [None]
